FAERS Safety Report 12097988 (Version 2)
Quarter: 2017Q2

REPORT INFORMATION
  Report Type: Spontaneous
  Country: US (occurrence: US)
  Receive Date: 20160221
  Receipt Date: 20170601
  Transmission Date: 20170829
  Serious: No
  Sender: FDA-Public Use
  Company Number: US-BIOGEN-2016BI00190009

PATIENT
  Sex: Female

DRUGS (1)
  1. AVONEX [Suspect]
     Active Substance: INTERFERON BETA-1A
     Indication: MULTIPLE SCLEROSIS
     Route: 030
     Dates: start: 20070609, end: 20130107

REACTIONS (10)
  - Asthma [Not Recovered/Not Resolved]
  - Abasia [Not Recovered/Not Resolved]
  - Malaise [Not Recovered/Not Resolved]
  - Viral upper respiratory tract infection [Recovered/Resolved]
  - Hypotonia [Not Recovered/Not Resolved]
  - Pain [Not Recovered/Not Resolved]
  - General physical health deterioration [Not Recovered/Not Resolved]
  - Bronchitis [Not Recovered/Not Resolved]
  - Gait disturbance [Not Recovered/Not Resolved]
  - Dizziness [Not Recovered/Not Resolved]
